FAERS Safety Report 5407322-6 (Version None)
Quarter: 2007Q3

REPORT INFORMATION
  Report Type: 
  Country: None (occurrence: None)
  Receive Date: 20070807
  Receipt Date: 20070726
  Transmission Date: 20080115
  Serious: Yes (Death, Other)
  Sender: FDA-Public Use
  Company Number: DE-ROCHE-508899

PATIENT
  Age: 40 Year
  Sex: Female

DRUGS (4)
  1. CELLCEPT [Suspect]
     Route: 065
     Dates: start: 19980101
  2. CYCLOPHOSPHAMIDE [Suspect]
     Dosage: PULSE THERAPY IN 1995/96
     Route: 065
     Dates: start: 19950101
  3. AZATHIOPRINE [Suspect]
     Route: 065
     Dates: start: 19990101
  4. CORTICOSTEROID NOS [Suspect]
     Route: 065

REACTIONS (2)
  - PROGRESSIVE MULTIFOCAL LEUKOENCEPHALOPATHY [None]
  - RENAL FAILURE [None]
